FAERS Safety Report 9753242 (Version 2)
Quarter: 2013Q4

REPORT INFORMATION
  Report Type: Spontaneous
  Country: US (occurrence: US)
  Receive Date: 20131213
  Receipt Date: 20131213
  Transmission Date: 20140711
  Serious: No
  Sender: FDA-Public Use
  Company Number: US-GILEAD-2010-0027619

PATIENT
  Age: 44 Year
  Sex: Female
  Weight: 77.11 kg

DRUGS (6)
  1. LETAIRIS [Suspect]
     Indication: PULMONARY ARTERIAL HYPERTENSION
     Route: 048
     Dates: start: 20090610
  2. SINGULAIR [Concomitant]
  3. AMLODIPINE [Concomitant]
  4. ADVAIR DISKU MIS [Concomitant]
  5. PROAIR HFA [Concomitant]
  6. XOPENEX [Concomitant]

REACTIONS (1)
  - Constipation [Not Recovered/Not Resolved]
